FAERS Safety Report 9198124 (Version 2)
Quarter: 2013Q2

REPORT INFORMATION
  Report Type: Spontaneous
  Country: CH (occurrence: CH)
  Receive Date: 20130329
  Receipt Date: 20130423
  Transmission Date: 20140414
  Serious: Yes (Hospitalization)
  Sender: FDA-Public Use
  Company Number: CH-ELI_LILLY_AND_COMPANY-CH201303008754

PATIENT
  Age: 73 Year
  Sex: Male

DRUGS (6)
  1. CYMBALTA [Suspect]
     Dosage: 60 MG, UNKNOWN
     Dates: start: 201208
  2. CYMBALTA [Suspect]
     Dosage: 90 MG, UNKNOWN
     Dates: end: 20121212
  3. CYMBALTA [Suspect]
     Dosage: 120 MG, UNKNOWN
     Dates: start: 20121213, end: 20130115
  4. CYMBALTA [Suspect]
     Dosage: 60 MG, UNKNOWN
     Dates: start: 20130116
  5. DIPIPERON [Concomitant]
     Dosage: 20 MG, QD
     Route: 048
     Dates: start: 2012, end: 20130117
  6. ATACAND PLUS [Concomitant]
     Indication: ESSENTIAL HYPERTENSION
     Dosage: 1 DF, QD
     Route: 048
     Dates: start: 2011

REACTIONS (1)
  - Dyskinesia [Recovered/Resolved]
